FAERS Safety Report 18048927 (Version 1)
Quarter: 2020Q3

REPORT INFORMATION
  Report Type: Spontaneous
  Country: US (occurrence: US)
  Receive Date: 20200720
  Receipt Date: 20200720
  Transmission Date: 20201103
  Serious: Yes (Death)
  Sender: FDA-Public Use
  Company Number: None

PATIENT
  Age: 79 Year
  Sex: Female

DRUGS (1)
  1. TOBRAMYCIN 300MG/5ML/20ML [Suspect]
     Active Substance: TOBRAMYCIN
     Indication: BRONCHIECTASIS
     Dosage: ?          OTHER DOSE:1 VIAL;OTHER ROUTE:INH ?28 D ON ?28 D OFF?
     Route: 055
     Dates: start: 20200331, end: 20200711

REACTIONS (1)
  - Death [None]

NARRATIVE: CASE EVENT DATE: 20200711
